FAERS Safety Report 25286082 (Version 1)
Quarter: 2025Q2

REPORT INFORMATION
  Report Type: Spontaneous
  Country: DE (occurrence: DE)
  Receive Date: 20250509
  Receipt Date: 20250509
  Transmission Date: 20250716
  Serious: Yes (Other)
  Sender: ORGANON
  Company Number: DE-LESVI-2025001893

PATIENT
  Age: 81 Year
  Sex: Female

DRUGS (8)
  1. MIRTAZAPINE [Suspect]
     Active Substance: MIRTAZAPINE
     Indication: Product used for unknown indication
  2. SERTRALINE [Suspect]
     Active Substance: SERTRALINE HYDROCHLORIDE
     Indication: Product used for unknown indication
  3. CINNARIZINE\DIMENHYDRINATE [Suspect]
     Active Substance: CINNARIZINE\DIMENHYDRINATE
     Indication: Dizziness
  4. PROMETHAZINE [Suspect]
     Active Substance: PROMETHAZINE HYDROCHLORIDE
     Indication: Product used for unknown indication
  5. MELPERONE [Suspect]
     Active Substance: MELPERONE
     Indication: Sleep disorder
  6. LEVETIRACETAM [Suspect]
     Active Substance: LEVETIRACETAM
     Indication: Epilepsy
  7. OXYBUTYNIN [Suspect]
     Active Substance: OXYBUTYNIN
     Indication: Micturition urgency
  8. TROSPIUM [Suspect]
     Active Substance: TROSPIUM
     Indication: Product used for unknown indication

REACTIONS (7)
  - Epilepsy [Unknown]
  - Dizziness [Unknown]
  - Restlessness [Unknown]
  - Sleep disorder [Recovered/Resolved]
  - Anticholinergic effect [Unknown]
  - Micturition urgency [Unknown]
  - Off label use [Unknown]
